FAERS Safety Report 22155728 (Version 1)
Quarter: 2023Q1

REPORT INFORMATION
  Report Type: Spontaneous
  Country: FR (occurrence: FR)
  Receive Date: 20230330
  Receipt Date: 20230330
  Transmission Date: 20230417
  Serious: Yes (Other)
  Sender: FDA-Public Use
  Company Number: FR-GLAXOSMITHKLINE-FR2023GSK045382

PATIENT

DRUGS (20)
  1. LAMOTRIGINE [Interacting]
     Active Substance: LAMOTRIGINE
     Indication: Impulsive behaviour
     Dosage: 25 MG, 1D
     Dates: start: 20220608
  2. LAMOTRIGINE [Interacting]
     Active Substance: LAMOTRIGINE
     Indication: Depression
     Dosage: 50 MG, 1D
     Dates: start: 20220623
  3. LAMOTRIGINE [Interacting]
     Active Substance: LAMOTRIGINE
     Dosage: 75 MG, 1D
     Dates: start: 20220701
  4. ARIPIPRAZOLE [Interacting]
     Active Substance: ARIPIPRAZOLE
     Indication: Impulsive behaviour
     Dosage: 5 MG, 1D
     Dates: start: 20220610
  5. ARIPIPRAZOLE [Interacting]
     Active Substance: ARIPIPRAZOLE
     Dosage: 10 MG, 1D
     Dates: start: 20220612
  6. ARIPIPRAZOLE [Interacting]
     Active Substance: ARIPIPRAZOLE
     Dosage: 15 MG, 1D
     Dates: start: 20220613
  7. ARIPIPRAZOLE [Interacting]
     Active Substance: ARIPIPRAZOLE
     Dosage: 30 MG, 1D
     Dates: start: 20220624
  8. MIRTAZAPINE [Interacting]
     Active Substance: MIRTAZAPINE
     Indication: Major depression
     Dosage: 7.5 MG, 1D
     Dates: start: 20220610
  9. MIRTAZAPINE [Interacting]
     Active Substance: MIRTAZAPINE
     Dosage: 15 MG, 1D
     Dates: start: 20220612
  10. MIRTAZAPINE [Interacting]
     Active Substance: MIRTAZAPINE
     Dosage: 30 MG, 1D
     Dates: start: 20220623
  11. PAROXETINE [Concomitant]
     Active Substance: PAROXETINE
     Indication: Depressive symptom
     Dosage: 20 MG, 1D
     Dates: start: 20220423
  12. PAROXETINE [Concomitant]
     Active Substance: PAROXETINE
     Dosage: 40 MG, 1D
     Dates: start: 20220426
  13. PAROXETINE [Concomitant]
     Active Substance: PAROXETINE
     Dosage: 20 MG, 1D
     Dates: start: 20220611
  14. PAROXETINE [Concomitant]
     Active Substance: PAROXETINE
     Dosage: 10 MG, 1D
     Dates: start: 20220613
  15. QUETIAPINE [Concomitant]
     Active Substance: QUETIAPINE
     Indication: Antisocial personality disorder
     Dosage: 400 MG, 1D
     Dates: start: 20220422
  16. QUETIAPINE [Concomitant]
     Active Substance: QUETIAPINE
     Dosage: 300 MG, 1D
     Dates: start: 20220528
  17. AMISULPRIDE [Concomitant]
     Active Substance: AMISULPRIDE
     Indication: Product used for unknown indication
     Dosage: 50 MG, 1D
     Dates: start: 20220422
  18. DIAZEPAM [Concomitant]
     Active Substance: DIAZEPAM
     Indication: Product used for unknown indication
     Dosage: 30 MG, 1D
     Dates: start: 20220422
  19. CYAMEMAZINE [Concomitant]
     Active Substance: CYAMEMAZINE
     Indication: Product used for unknown indication
     Dosage: 150 MG, 1D
     Dates: start: 20220422
  20. ZOPICLONE [Concomitant]
     Active Substance: ZOPICLONE
     Indication: Product used for unknown indication
     Dosage: 7.5 MG, 1D
     Dates: start: 20220422

REACTIONS (13)
  - Drug interaction [Recovered/Resolved]
  - Insomnia [Recovered/Resolved]
  - Behaviour disorder [Recovered/Resolved]
  - Disorganised speech [Recovered/Resolved]
  - Sleep disorder [Recovered/Resolved]
  - Affect lability [Recovered/Resolved]
  - Condition aggravated [Recovered/Resolved]
  - Confusional state [Recovered/Resolved]
  - Hallucination, visual [Recovered/Resolved]
  - Delusion [Recovered/Resolved]
  - Agitation [Recovered/Resolved]
  - Disease progression [Recovered/Resolved]
  - Therapy non-responder [Unknown]
